FAERS Safety Report 10693393 (Version 6)
Quarter: 2015Q2

REPORT INFORMATION
  Report Type: Spontaneous
  Country: JP (occurrence: JP)
  Receive Date: 20150106
  Receipt Date: 20150619
  Transmission Date: 20150821
  Serious: Yes (Hospitalization, Other)
  Sender: FDA-Public Use
  Company Number: JP-CELGENE-087-21880-13053183

PATIENT
  Age: 66 Year
  Sex: Male
  Weight: 60.8 kg

DRUGS (93)
  1. SENNOSIDE A+B [Concomitant]
     Active Substance: SENNOSIDES A AND B
     Indication: PRODUCT USED FOR UNKNOWN INDICATION
     Route: 065
     Dates: start: 2007, end: 201301
  2. LIMAPROST ALFADEX [Concomitant]
     Active Substance: LIMAPROST
     Indication: PRODUCT USED FOR UNKNOWN INDICATION
     Route: 065
     Dates: start: 201101, end: 20120828
  3. DIMETHYL ISOPROPYLAZULENE [Concomitant]
     Indication: PUSTULAR PSORIASIS
     Route: 065
     Dates: start: 2008, end: 20121014
  4. RINDERON VG [Concomitant]
     Active Substance: BETAMETHASONE VALERATE\GENTAMICIN SULFATE
     Route: 065
     Dates: start: 20140116, end: 20141210
  5. OXIGLUTATIONE [Concomitant]
     Indication: ADVERSE EVENT
     Route: 065
     Dates: start: 20140206, end: 20140206
  6. PURIFIED SODIUM HYALURONATE [Concomitant]
     Indication: ADVERSE EVENT
     Route: 065
     Dates: start: 20140206, end: 20140206
  7. ATROPINE SULFATE HYDRATE [Concomitant]
     Active Substance: ATROPINE SULFATE
     Indication: ADVERSE EVENT
     Route: 065
     Dates: start: 20140206, end: 20140206
  8. COLISTIN SODIUM METHANESULFONATE [Concomitant]
     Active Substance: COLISTIN A SODIUM METHANESULFONATE
     Indication: ADVERSE EVENT
     Route: 065
     Dates: start: 20140206, end: 20140206
  9. DEXAMETHASONE. [Suspect]
     Active Substance: DEXAMETHASONE
     Indication: PLASMA CELL MYELOMA
     Route: 048
     Dates: start: 20120829, end: 20130516
  10. CEFDITOREN PIVOXIL. [Concomitant]
     Active Substance: CEFDITOREN PIVOXIL
     Indication: PRODUCT USED FOR UNKNOWN INDICATION
     Route: 065
     Dates: start: 20120815, end: 20120818
  11. TEPRENONE [Concomitant]
     Active Substance: TEPRENONE
     Indication: PRODUCT USED FOR UNKNOWN INDICATION
     Route: 065
     Dates: start: 2000, end: 20120904
  12. VORICONAZOLE. [Concomitant]
     Active Substance: VORICONAZOLE
     Indication: PRODUCT USED FOR UNKNOWN INDICATION
     Route: 065
     Dates: start: 20120831, end: 20121107
  13. MAGNESIUM OXIDE. [Concomitant]
     Active Substance: MAGNESIUM OXIDE
     Indication: ADVERSE EVENT
     Route: 065
     Dates: start: 20120905
  14. CALCIUM POLYSTYRENE SULFONATE [Concomitant]
     Active Substance: CALCIUM POLYSTYRENE SULFONATE
     Route: 065
     Dates: start: 20121016, end: 20121026
  15. OXYCODONE HCL [Concomitant]
     Active Substance: OXYCODONE HYDROCHLORIDE
     Indication: ADVERSE EVENT
     Route: 065
     Dates: start: 20120917, end: 20131218
  16. LENADEX [Suspect]
     Active Substance: DEXAMETHASONE ACETATE
     Indication: PLASMA CELL MYELOMA
     Route: 041
     Dates: start: 20120829
  17. TEPRENONE [Concomitant]
     Active Substance: TEPRENONE
     Route: 065
     Dates: start: 20140206, end: 20140209
  18. FAMOTIDINE. [Concomitant]
     Active Substance: FAMOTIDINE
     Indication: PRODUCT USED FOR UNKNOWN INDICATION
     Route: 065
     Dates: start: 200704, end: 20120904
  19. KETOPROFEN. [Concomitant]
     Active Substance: KETOPROFEN
     Indication: PRODUCT USED FOR UNKNOWN INDICATION
     Route: 065
     Dates: start: 201107, end: 201211
  20. SOLDEM 1 [Concomitant]
     Active Substance: DEXTROSE\SODIUM CHLORIDE\SODIUM LACTATE
     Route: 065
     Dates: start: 20141212, end: 20141226
  21. PL COMBINATION GRANULE [Concomitant]
     Route: 065
     Dates: start: 20140715, end: 20140717
  22. GENTAMICIN SULFATE. [Concomitant]
     Active Substance: GENTAMICIN SULFATE
     Indication: ADVERSE EVENT
     Route: 065
     Dates: start: 20130529, end: 20140115
  23. DICLOFENAC SODIUM. [Concomitant]
     Active Substance: DICLOFENAC SODIUM
     Indication: ADVERSE EVENT
     Route: 065
     Dates: start: 20140206, end: 20140212
  24. DICLOFENAC SODIUM. [Concomitant]
     Active Substance: DICLOFENAC SODIUM
     Route: 065
     Dates: start: 20140213, end: 20140323
  25. BETAMETHASONE SODIUM PHOSPHATE [Concomitant]
     Active Substance: BETAMETHASONE SODIUM PHOSPHATE
     Indication: ADVERSE EVENT
     Route: 065
     Dates: start: 20140207, end: 20140212
  26. CEFCAPENE PIVOXIL HYDROCHLORIDE HYDRATE [Concomitant]
     Active Substance: CEFCAPENE PIVOXIL HYDROCHLORIDE HYDRATE
     Indication: PRODUCT USED FOR UNKNOWN INDICATION
     Route: 065
     Dates: start: 20140206, end: 20140209
  27. WARFARIN SODIUM. [Concomitant]
     Active Substance: WARFARIN SODIUM
     Indication: ADVERSE EVENT
     Route: 065
     Dates: start: 20141220
  28. WARFARIN SODIUM. [Concomitant]
     Active Substance: WARFARIN SODIUM
     Route: 065
     Dates: start: 20141222
  29. WARFARIN POTASSIUM [Concomitant]
     Active Substance: WARFARIN POTASSIUM
     Indication: ADVERSE EVENT
     Route: 065
     Dates: start: 20141220
  30. ETRETINATE [Concomitant]
     Active Substance: ETRETINATE
     Route: 065
     Dates: start: 20140108, end: 20140115
  31. CELECOXIB. [Concomitant]
     Active Substance: CELECOXIB
     Indication: PRODUCT USED FOR UNKNOWN INDICATION
     Route: 065
     Dates: start: 201104
  32. DIMETHYL ISOPROPYLAZULENE [Concomitant]
     Indication: ADVERSE EVENT
     Route: 065
     Dates: start: 20130509, end: 20130515
  33. RINDERON VG [Concomitant]
     Active Substance: BETAMETHASONE VALERATE\GENTAMICIN SULFATE
     Indication: PRODUCT USED FOR UNKNOWN INDICATION
     Route: 065
     Dates: start: 2001, end: 20121005
  34. ZINC OXIDE. [Concomitant]
     Active Substance: ZINC OXIDE
     Indication: ERYTHEMA
     Route: 065
     Dates: start: 20121015, end: 201211
  35. CEFTAZIDIME. [Concomitant]
     Active Substance: CEFTAZIDIME
     Indication: ADVERSE EVENT
     Route: 065
     Dates: start: 20121007, end: 20121011
  36. LEVOFLOXACIN HEMIHYDRATE [Concomitant]
     Active Substance: LEVOFLOXACIN
     Route: 065
     Dates: start: 20140203, end: 20140323
  37. ACETYLCHOLINE CHLORIDE [Concomitant]
     Active Substance: ACETYLCHOLINE CHLORIDE
     Indication: ADVERSE EVENT
     Route: 065
     Dates: start: 20140206, end: 20140206
  38. MYDRIN P (TROPICAMIDE, PHENYLEPHRINE HYDROCHLORIDE) COMBINATION [Concomitant]
     Indication: ADVERSE EVENT
     Route: 065
     Dates: start: 20140206, end: 20140212
  39. MYDRIN P (TROPICAMIDE, PHENYLEPHRINE HYDROCHLORIDE) COMBINATION [Concomitant]
     Route: 065
     Dates: start: 20140213, end: 20140323
  40. SILODOSIN [Concomitant]
     Active Substance: SILODOSIN
     Indication: ADVERSE EVENT
     Route: 065
     Dates: start: 20140129
  41. ETRETINATE [Concomitant]
     Active Substance: ETRETINATE
     Indication: PRODUCT USED FOR UNKNOWN INDICATION
     Route: 065
     Dates: start: 2000, end: 20121005
  42. ETRETINATE [Concomitant]
     Active Substance: ETRETINATE
     Indication: PUSTULAR PSORIASIS
     Route: 065
     Dates: start: 20130517, end: 20140115
  43. ETRETINATE [Concomitant]
     Active Substance: ETRETINATE
     Route: 065
     Dates: start: 20140116
  44. ALENDRONATE SODIUM HYDRATE [Concomitant]
     Active Substance: ALENDRONATE SODIUM
     Indication: PRODUCT USED FOR UNKNOWN INDICATION
     Route: 065
     Dates: start: 200701
  45. BAKTAR [Concomitant]
     Active Substance: SULFAMETHOXAZOLE\TRIMETHOPRIM
     Indication: PRODUCT USED FOR UNKNOWN INDICATION
     Route: 048
     Dates: start: 20120829, end: 20150108
  46. FLUCONAZOLE. [Concomitant]
     Active Substance: FLUCONAZOLE
     Indication: PRODUCT USED FOR UNKNOWN INDICATION
     Route: 065
     Dates: start: 20120829, end: 20120830
  47. D-CHLORPHENIRAMINE MALEATE [Concomitant]
     Indication: PRODUCT USED FOR UNKNOWN INDICATION
     Route: 065
     Dates: start: 20120909, end: 20120909
  48. ISOTONIC SODIUM CHLORIDE SOLUTION [Concomitant]
     Active Substance: SODIUM CHLORIDE
     Indication: PRODUCT USED FOR UNKNOWN INDICATION
     Route: 065
     Dates: start: 20120921, end: 20120921
  49. ZINC OXIDE. [Concomitant]
     Active Substance: ZINC OXIDE
     Route: 061
     Dates: start: 201305
  50. AMLODIPINE BESILATE [Concomitant]
     Active Substance: AMLODIPINE BESYLATE
     Indication: PRODUCT USED FOR UNKNOWN INDICATION
     Route: 065
     Dates: start: 20130110
  51. ACETAMINOPHEN. [Concomitant]
     Active Substance: ACETAMINOPHEN
     Route: 065
     Dates: start: 20130516, end: 20130525
  52. LEVOFLOXACIN HEMIHYDRATE [Concomitant]
     Active Substance: LEVOFLOXACIN
     Indication: ADVERSE EVENT
     Route: 065
     Dates: start: 20121024, end: 20121030
  53. CEFAZOLIN SODIUM. [Concomitant]
     Active Substance: CEFAZOLIN SODIUM
     Indication: ADVERSE EVENT
     Route: 065
     Dates: start: 20130516, end: 20130528
  54. CALCIUM POLYSTYRENE SULFONATE [Concomitant]
     Active Substance: CALCIUM POLYSTYRENE SULFONATE
     Indication: ADVERSE EVENT
     Route: 065
     Dates: start: 20120921, end: 20121005
  55. ADRENALINE [Concomitant]
     Active Substance: EPINEPHRINE
     Indication: ADVERSE EVENT
     Route: 065
     Dates: start: 20140206, end: 20140206
  56. HEPARIN SODIUM. [Concomitant]
     Active Substance: HEPARIN SODIUM
     Indication: ADVERSE EVENT
     Route: 065
     Dates: start: 20141212, end: 20141226
  57. DEXAMETHASONE. [Suspect]
     Active Substance: DEXAMETHASONE
     Route: 048
     Dates: start: 20120829
  58. BUFFERIN [Concomitant]
     Active Substance: ASPIRIN
     Indication: PRODUCT USED FOR UNKNOWN INDICATION
     Route: 048
     Dates: start: 20120829, end: 20141211
  59. SOLDEM 1 [Concomitant]
     Active Substance: DEXTROSE\SODIUM CHLORIDE\SODIUM LACTATE
     Indication: ADVERSE EVENT
     Route: 065
     Dates: start: 20121012, end: 20121018
  60. ZINC OXIDE. [Concomitant]
     Active Substance: ZINC OXIDE
     Route: 065
     Dates: start: 20130513, end: 20130515
  61. ACETAMINOPHEN. [Concomitant]
     Active Substance: ACETAMINOPHEN
     Indication: ADVERSE EVENT
     Route: 065
     Dates: start: 20121007, end: 20121012
  62. VANCOMYCIN HCL [Concomitant]
     Active Substance: VANCOMYCIN HYDROCHLORIDE
     Indication: ADVERSE EVENT
     Route: 065
     Dates: start: 20121012, end: 20121023
  63. HYDROCORTISONE BUTYRATE. [Concomitant]
     Active Substance: HYDROCORTISONE BUTYRATE
     Route: 065
     Dates: start: 20130704, end: 20141210
  64. BACITRACIN FRADIOMICYN SULFATE [Concomitant]
     Indication: ADVERSE EVENT
     Route: 065
     Dates: start: 20130517, end: 20130522
  65. PL COMBINATION GRANULE [Concomitant]
     Indication: ADVERSE EVENT
     Route: 065
     Dates: start: 20130227, end: 20130302
  66. FUROSEMIDE. [Concomitant]
     Active Substance: FUROSEMIDE
     Indication: ADVERSE EVENT
     Route: 065
     Dates: start: 20120907, end: 20120911
  67. NEW LECICARBON [Concomitant]
     Active Substance: SODIUM BICARBONATE\SODIUM PHOSPHATE, MONOBASIC
     Indication: ADVERSE EVENT
     Route: 065
     Dates: start: 20120907, end: 20121006
  68. GLYCERIN. [Concomitant]
     Active Substance: GLYCERIN
     Indication: ADVERSE EVENT
     Route: 065
     Dates: start: 20120906, end: 20121006
  69. LIDOCAINE HYDROCHLORIDE. [Concomitant]
     Active Substance: LIDOCAINE HYDROCHLORIDE
     Indication: ADVERSE EVENT
     Route: 065
     Dates: start: 20140206, end: 20140206
  70. LIDOCAINE HYDROCHLORIDE ADRENALINE COMBINATION [Concomitant]
     Indication: ADVERSE EVENT
     Route: 065
     Dates: start: 20140206, end: 20140206
  71. NIFEDIPINE. [Concomitant]
     Active Substance: NIFEDIPINE
     Indication: PRODUCT USED FOR UNKNOWN INDICATION
     Route: 065
     Dates: start: 200205, end: 20121012
  72. BROTIZOLAM [Concomitant]
     Active Substance: BROTIZOLAM
     Indication: PRODUCT USED FOR UNKNOWN INDICATION
     Route: 065
     Dates: start: 2002
  73. RINDERON VG [Concomitant]
     Active Substance: BETAMETHASONE VALERATE\GENTAMICIN SULFATE
     Indication: PUSTULAR PSORIASIS
     Route: 065
     Dates: start: 20130517, end: 20140115
  74. OMEPRAZOLE. [Concomitant]
     Active Substance: OMEPRAZOLE
     Indication: PRODUCT USED FOR UNKNOWN INDICATION
     Route: 065
     Dates: start: 20120829
  75. LENOGRASTIM [Concomitant]
     Active Substance: LENOGRASTIM
     Indication: ADVERSE EVENT
     Route: 065
     Dates: start: 20121012, end: 20121017
  76. GENTAMICIN SULFATE. [Concomitant]
     Active Substance: GENTAMICIN SULFATE
     Route: 065
     Dates: start: 20140116, end: 20141210
  77. BROCIN-CODEINE [Concomitant]
     Indication: ADVERSE EVENT
     Route: 048
     Dates: start: 20120906, end: 20121011
  78. TAMSULOSIN HYDROCHLORIDE. [Concomitant]
     Active Substance: TAMSULOSIN HYDROCHLORIDE
     Indication: ADVERSE EVENT
     Route: 048
     Dates: start: 20131219, end: 20140108
  79. TOBRAMYCIN. [Concomitant]
     Active Substance: TOBRAMYCIN
     Indication: ADVERSE EVENT
     Route: 065
     Dates: start: 20140206, end: 20140206
  80. REVLIMID [Suspect]
     Active Substance: LENALIDOMIDE
     Indication: PLASMA CELL MYELOMA
     Dosage: 10 MILLIGRAM
     Route: 048
     Dates: start: 20120829
  81. ELOTUZUMAB [Suspect]
     Active Substance: ELOTUZUMAB
     Indication: PLASMA CELL MYELOMA
     Dosage: 10 MILLIGRAM/KILOGRAM
     Route: 041
     Dates: start: 20120829
  82. FELBINAC [Concomitant]
     Active Substance: FELBINAC
     Indication: PRODUCT USED FOR UNKNOWN INDICATION
     Route: 065
     Dates: start: 201204, end: 20141210
  83. VALACYCLOVIR HCL [Concomitant]
     Active Substance: VALACYCLOVIR HYDROCHLORIDE
     Indication: PRODUCT USED FOR UNKNOWN INDICATION
     Route: 065
     Dates: start: 20120829, end: 20150108
  84. SODIUM PICOSULFATE HYDRATE [Concomitant]
     Indication: PRODUCT USED FOR UNKNOWN INDICATION
     Route: 065
     Dates: start: 20120904, end: 201301
  85. SOLDEM 3A [Concomitant]
     Active Substance: CARBOHYDRATES\POTASSIUM CHLORIDE\SODIUM CHLORIDE\SODIUM LACTATE
     Indication: ADVERSE EVENT
     Route: 065
     Dates: start: 20120828, end: 20120830
  86. MEROPENEM HYDRATE [Concomitant]
     Active Substance: MEROPENEM
     Indication: ADVERSE EVENT
     Route: 065
     Dates: start: 20121011, end: 20121023
  87. LEVOFLOXACIN HEMIHYDRATE [Concomitant]
     Active Substance: LEVOFLOXACIN
     Route: 065
     Dates: start: 20140203, end: 20140212
  88. HYDROCORTISONE BUTYRATE. [Concomitant]
     Active Substance: HYDROCORTISONE BUTYRATE
     Indication: ADVERSE EVENT
     Route: 065
     Dates: start: 20130517, end: 20130703
  89. POLYVINYL ALCOHOL IODINE SOLUTION [Concomitant]
     Indication: ADVERSE EVENT
     Route: 065
     Dates: start: 20140206, end: 20140206
  90. VISCOAT [Concomitant]
     Indication: ADVERSE EVENT
     Route: 065
     Dates: start: 20140206, end: 20140206
  91. PHENYLEPHRINE HYDROCHLORIDE. [Concomitant]
     Active Substance: PHENYLEPHRINE HYDROCHLORIDE
     Indication: ADVERSE EVENT
     Route: 065
     Dates: start: 20140206, end: 20140206
  92. BETAMETHASONE SODIUM PHOSPHATE [Concomitant]
     Active Substance: BETAMETHASONE SODIUM PHOSPHATE
     Route: 065
     Dates: start: 20140213, end: 20140323
  93. SOLIFENACIN SUCCINATE [Concomitant]
     Active Substance: SOLIFENACIN SUCCINATE
     Indication: ADVERSE EVENT
     Route: 065
     Dates: start: 20140716

REACTIONS (2)
  - Cataract [Recovered/Resolved]
  - Pustular psoriasis [Recovered/Resolved]

NARRATIVE: CASE EVENT DATE: 20130515
